FAERS Safety Report 8923164 (Version 1)
Quarter: 2012Q4

REPORT INFORMATION
  Report Type: Spontaneous
  Country: US (occurrence: None)
  Receive Date: 20121115
  Receipt Date: 20121115
  Transmission Date: 20130627
  Serious: Yes (Other)
  Sender: FDA-Public Use
  Company Number: None

PATIENT
  Sex: Female

DRUGS (2)
  1. LUVOX CR [Suspect]
     Indication: OBSESSIVE-COMPULSIVE DISORDER
     Dates: start: 20110607
  2. CYMBALTA [Suspect]
     Indication: BIPOLAR DISORDER
     Dates: start: 20111206

REACTIONS (1)
  - Drug ineffective [None]
